FAERS Safety Report 6294138-4 (Version None)
Quarter: 2009Q3

REPORT INFORMATION
  Report Type: 
  Country: None (occurrence: None)
  Receive Date: 20090803
  Receipt Date: 20081218
  Transmission Date: 20100115
  Serious: No
  Sender: FDA-Public Use
  Company Number: A0761031A

PATIENT
  Age: 54 Year
  Sex: Female

DRUGS (1)
  1. NICORETTE [Suspect]
     Dates: start: 20081214

REACTIONS (2)
  - GINGIVAL BLISTER [None]
  - TONGUE DISORDER [None]
